FAERS Safety Report 11154827 (Version 1)
Quarter: 2015Q2

REPORT INFORMATION
  Report Type: Spontaneous
  Country: US (occurrence: None)
  Receive Date: 20150529
  Receipt Date: 20150529
  Transmission Date: 20150821
  Serious: Yes (Hospitalization, Other)
  Sender: FDA-Public Use
  Company Number: US-2014VAL000513

PATIENT
  Age: 64 Year
  Sex: Female
  Weight: 77.8 kg

DRUGS (10)
  1. ZETIA [Suspect]
     Active Substance: EZETIMIBE
     Indication: HYPERCHOLESTEROLAEMIA
     Dates: start: 20140929
  2. ANASTRAZOLE [Suspect]
     Active Substance: ANASTROZOLE
  3. LIPITOR [Concomitant]
     Active Substance: ATORVASTATIN CALCIUM
  4. EVEROLIMUS [Suspect]
     Active Substance: EVEROLIMUS
     Indication: BREAST CANCER
     Dosage: CODE NOT BROKEN
     Route: 048
     Dates: start: 20140619, end: 20141021
  5. FULVESTRANT [Suspect]
     Active Substance: FULVESTRANT
     Indication: BREAST CANCER
     Dosage: 500 MG, UNK (250 MG INTO EACH BUTTOCK), INTRAMUSCULAR
     Route: 030
     Dates: start: 20140910
  6. DECADRON [Suspect]
     Active Substance: DEXAMETHASONE
     Indication: PRODUCT USED FOR UNKNOWN INDICATION
  7. BENADRYL /00647601/ (CAMPHOR, DIPHENHYDRAMINE HYDROCHLORIDE, ZINC OXIDE) [Concomitant]
  8. PLACEBO [Suspect]
     Active Substance: UNSPECIFIED INGREDIENT
  9. BENAZEPRIL HYDROCHLORIDE. [Suspect]
     Active Substance: BENAZEPRIL HYDROCHLORIDE
     Indication: PRODUCT USED FOR UNKNOWN INDICATION
     Dates: end: 20141004
  10. DIPHENHYDRAMINE HYDROCHLORIDE. [Concomitant]
     Active Substance: DIPHENHYDRAMINE HYDROCHLORIDE

REACTIONS (16)
  - Sinus tachycardia [None]
  - Pneumonitis [None]
  - Decreased appetite [None]
  - Anaemia [None]
  - Chills [None]
  - Rash [None]
  - Fatigue [None]
  - Hypertension [None]
  - Dysuria [None]
  - Angioedema [None]
  - Renal failure [None]
  - Glossodynia [None]
  - Abdominal pain upper [None]
  - Dehydration [None]
  - Azotaemia [None]
  - Condition aggravated [None]

NARRATIVE: CASE EVENT DATE: 2014
